FAERS Safety Report 5986203-3 (Version None)
Quarter: 2008Q4

REPORT INFORMATION
  Report Type: 
  Country: None (occurrence: None)
  Receive Date: 20081209
  Receipt Date: 20081201
  Transmission Date: 20090506
  Serious: Yes (Other)
  Sender: FDA-Public Use
  Company Number: AU-KINGPHARMUSA00001-K200801370

PATIENT
  Age: 62 Year
  Sex: Female

DRUGS (1)
  1. LEVOXYL [Suspect]
     Indication: GOITRE
     Dosage: 100 MCG, QD
     Route: 048

REACTIONS (27)
  - ABDOMINAL PAIN [None]
  - ALANINE AMINOTRANSFERASE INCREASED [None]
  - ALOPECIA [None]
  - ANOREXIA [None]
  - ASPARTATE AMINOTRANSFERASE INCREASED [None]
  - BURNING SENSATION [None]
  - CRONKHITE-CANADA SYNDROME [None]
  - DIARRHOEA [None]
  - DYSGEUSIA [None]
  - GASTRIC POLYPS [None]
  - GASTROINTESTINAL INFLAMMATION [None]
  - GLOSSITIS [None]
  - HYPOALBUMINAEMIA [None]
  - INFLAMMATION [None]
  - INTESTINAL POLYP [None]
  - NAIL DISORDER [None]
  - NAIL DYSTROPHY [None]
  - NAIL GROWTH ABNORMAL [None]
  - NORMOCHROMIC NORMOCYTIC ANAEMIA [None]
  - OESOPHAGEAL CANDIDIASIS [None]
  - OVARIAN CYST [None]
  - PLATELET COUNT INCREASED [None]
  - PROTEIN-LOSING GASTROENTEROPATHY [None]
  - RED BLOOD CELL SEDIMENTATION RATE INCREASED [None]
  - SKIN HYPERPIGMENTATION [None]
  - STOOL ANALYSIS ABNORMAL [None]
  - WEIGHT DECREASED [None]
